FAERS Safety Report 7508025-4 (Version None)
Quarter: 2011Q2

REPORT INFORMATION
  Report Type: 
  Country: None (occurrence: None)
  Receive Date: 20110527
  Receipt Date: 20110517
  Transmission Date: 20111010
  Serious: No
  Sender: FDA-Public Use
  Company Number: US-ELI_LILLY_AND_COMPANY-US201010001787

PATIENT
  Sex: Female

DRUGS (22)
  1. FERROUS SULFATE TAB [Concomitant]
  2. CALCIUM W/VITAMIN D /00188401/ [Concomitant]
  3. VIT B6 [Concomitant]
  4. FORTEO [Suspect]
     Indication: OSTEOPOROSIS
     Dosage: 20 UG, DAILY (1/D)
     Dates: start: 20090705
  5. METHOTREXATE [Concomitant]
  6. ATENOLOL [Concomitant]
  7. OMEPRAZOLE [Concomitant]
  8. EXCEDRIN (MIGRAINE) [Concomitant]
  9. GABAPENTIN [Concomitant]
  10. FOLIC ACID [Concomitant]
  11. TYLENOL PM [Concomitant]
  12. FORTEO [Suspect]
     Dosage: 20 UG, QD
  13. CARBIDOPA + LEVODOPA [Concomitant]
  14. ACYCLOVIR [Concomitant]
  15. PREDNISONE [Concomitant]
  16. SIMVASTATIN [Concomitant]
  17. ENTERIC ASPIRIN [Concomitant]
  18. ASPIRIN [Concomitant]
  19. HYDROCODONE BITARTRATE AND ACETAMINOPHEN [Concomitant]
  20. TYLENOL (CAPLET) [Concomitant]
  21. VIT B12 [Concomitant]
  22. ASCORBIC ACID [Concomitant]

REACTIONS (9)
  - RHEUMATOID ARTHRITIS [None]
  - BALANCE DISORDER [None]
  - MUSCULOSKELETAL PAIN [None]
  - PAIN IN EXTREMITY [None]
  - BACK PAIN [None]
  - CATARACT [None]
  - PROCEDURAL PAIN [None]
  - ARTHRALGIA [None]
  - HAND DEFORMITY [None]
